FAERS Safety Report 21048012 (Version 1)
Quarter: 2022Q3

REPORT INFORMATION
  Report Type: Report from Study
  Country: CA (occurrence: CA)
  Receive Date: 20220706
  Receipt Date: 20220706
  Transmission Date: 20221027
  Serious: Yes (Other)
  Sender: FDA-Public Use
  Company Number: CA-BAUSCH-BL-2021-010053

PATIENT
  Age: 58 Year
  Sex: Female

DRUGS (9)
  1. CONTRAVE [Suspect]
     Active Substance: BUPROPION HYDROCHLORIDE\NALTREXONE HYDROCHLORIDE
     Indication: Weight control
     Dosage: 90 MG/8 MG
     Route: 048
     Dates: start: 20210310, end: 20210316
  2. CONTRAVE [Suspect]
     Active Substance: BUPROPION HYDROCHLORIDE\NALTREXONE HYDROCHLORIDE
     Dosage: 90 MG/8 MG
     Route: 048
     Dates: start: 20210317, end: 202103
  3. CONTRAVE [Suspect]
     Active Substance: BUPROPION HYDROCHLORIDE\NALTREXONE HYDROCHLORIDE
     Dosage: 90 MG/8 MG
     Route: 048
     Dates: start: 202103, end: 20210330
  4. CONTRAVE [Suspect]
     Active Substance: BUPROPION HYDROCHLORIDE\NALTREXONE HYDROCHLORIDE
     Dosage: 90 MG/8 MG, 2TAB Q AM 2 TAB Q PM
     Route: 048
     Dates: start: 20210331, end: 20220614
  5. WELLBUTRIN [Suspect]
     Active Substance: BUPROPION HYDROCHLORIDE
     Indication: Depression
     Dosage: STARTED WELLBUTRIN 150 MG DAILY WITH CONTRAVE
     Route: 048
     Dates: start: 20210310
  6. ABILIFY [Concomitant]
     Active Substance: ARIPIPRAZOLE
     Indication: Depression
     Dosage: HALF TABLET DAILY
     Route: 048
  7. EFFEXOR [Concomitant]
     Active Substance: VENLAFAXINE HYDROCHLORIDE
     Indication: Depression
     Dosage: DAILY
     Route: 048
  8. VITAMIN D [Concomitant]
     Active Substance: VITAMIN D NOS
     Indication: Supplementation therapy
     Dosage: ONE TABLET DAILY
     Route: 048
  9. VENTOLIN [Concomitant]
     Active Substance: ALBUTEROL SULFATE
     Indication: Asthma

REACTIONS (8)
  - Gastric bypass [Unknown]
  - Flatulence [Not Recovered/Not Resolved]
  - Frequent bowel movements [Not Recovered/Not Resolved]
  - Dumping syndrome [Unknown]
  - Fatigue [Not Recovered/Not Resolved]
  - Contraindicated product administered [Unknown]
  - Therapeutic response unexpected [Unknown]
  - Intentional product use issue [Unknown]

NARRATIVE: CASE EVENT DATE: 20210310
